FAERS Safety Report 22226891 (Version 1)
Quarter: 2023Q2

REPORT INFORMATION
  Report Type: Report from Study
  Country: BR (occurrence: BR)
  Receive Date: 20230419
  Receipt Date: 20230419
  Transmission Date: 20230721
  Serious: Yes (Other)
  Sender: FDA-Public Use
  Company Number: BR-CELLTRION INC.-2023BR008016

PATIENT

DRUGS (5)
  1. INFLIXIMAB [Suspect]
     Active Substance: INFLIXIMAB
     Indication: Crohn^s disease
     Dosage: 9 AMPOULES EVERY 2 MONTHS
     Route: 042
     Dates: start: 20220831
  2. INFLIXIMAB [Suspect]
     Active Substance: INFLIXIMAB
     Dosage: 9 AMPOULES EVERY 2 MONTHS
     Route: 042
     Dates: start: 20230214
  3. AZATHIOPRINE [Concomitant]
     Active Substance: AZATHIOPRINE
     Indication: Crohn^s disease
     Dosage: 4 CAPSULES DAY
     Route: 048
     Dates: start: 2019
  4. DOMPERIDONE [Concomitant]
     Active Substance: DOMPERIDONE
     Indication: Crohn^s disease
     Dosage: 1 CAPSULE DAY
     Route: 048
     Dates: start: 2019
  5. PANTOPRAZOLE [Concomitant]
     Active Substance: PANTOPRAZOLE
     Indication: Crohn^s disease
     Dosage: 1 CAPSULE DAY
     Route: 048
     Dates: start: 2019

REACTIONS (9)
  - Crohn^s disease [Unknown]
  - Decreased appetite [Unknown]
  - Decreased immune responsiveness [Unknown]
  - Weight decreased [Unknown]
  - Fatigue [Unknown]
  - Illness [Unknown]
  - Abdominal pain [Unknown]
  - Therapy interrupted [Unknown]
  - Product availability issue [Unknown]
